FAERS Safety Report 4692923-3 (Version None)
Quarter: 2005Q2

REPORT INFORMATION
  Report Type: 
  Country: None (occurrence: None)
  Receive Date: 20050615
  Receipt Date: 20050602
  Transmission Date: 20051028
  Serious: Yes (Other)
  Sender: FDA-Public Use
  Company Number: 2005-0008173

PATIENT
  Age: 45 Year
  Sex: Male

DRUGS (5)
  1. HEPSERA [Suspect]
     Indication: HEPATITIS B
     Dosage: 10 MG, 1 IN 1 D, ORAL
     Route: 048
     Dates: start: 20050114
  2. ZEFFIX (LAMIVUDINE) [Concomitant]
  3. EUGLUCON (GLIBENCLAMIDE) [Concomitant]
  4. LOCHOL (FLUVASTATIN SODIUM) [Concomitant]
  5. BASEN (VOGLIBOSE) [Concomitant]

REACTIONS (5)
  - DRUG HYPERSENSITIVITY [None]
  - EOSINOPHIL COUNT INCREASED [None]
  - HEPATIC FUNCTION ABNORMAL [None]
  - HEPATIC STEATOSIS [None]
  - HYPERLIPIDAEMIA [None]
